FAERS Safety Report 8005016-4 (Version None)
Quarter: 2011Q4

REPORT INFORMATION
  Report Type: 
  Country: None (occurrence: None)
  Receive Date: 20111223
  Receipt Date: 20111219
  Transmission Date: 20120403
  Serious: Yes (Other)
  Sender: FDA-Public Use
  Company Number: JP-JNJFOC-20111204706

PATIENT
  Age: 76 Year
  Sex: Male

DRUGS (4)
  1. TRAMADOL HYDROCHLORIDE/ACETAMINOPHEN [Suspect]
     Route: 048
     Dates: start: 20111204, end: 20111207
  2. TRAMADOL HYDROCHLORIDE/ACETAMINOPHEN [Suspect]
     Indication: PRODUCT USED FOR UNKNOWN INDICATION
     Route: 048
     Dates: start: 20111207
  3. TRAMADOL HYDROCHLORIDE/ACETAMINOPHEN [Suspect]
     Route: 048
     Dates: start: 20111201, end: 20111203
  4. VANCOMYCIN HYCHLORIDE [Concomitant]
     Route: 065

REACTIONS (2)
  - VIITH NERVE PARALYSIS [None]
  - PLEURAL EFFUSION [None]
